FAERS Safety Report 6066623-1 (Version None)
Quarter: 2009Q1

REPORT INFORMATION
  Report Type: 
  Country: None (occurrence: None)
  Receive Date: 20090205
  Receipt Date: 20090128
  Transmission Date: 20090719
  Serious: Yes (Other)
  Sender: FDA-Public Use
  Company Number: B0557505A

PATIENT
  Age: 16 Year
  Sex: Male

DRUGS (3)
  1. ACYCLOVIR [Suspect]
     Dosage: 30MGK PER DAY
     Route: 042
  2. CEFOTAXIME [Concomitant]
     Dosage: 2G FOUR TIMES PER DAY
     Route: 042
  3. FLUID [Concomitant]
     Route: 042

REACTIONS (7)
  - BLOOD CREATININE INCREASED [None]
  - HYPERTENSION [None]
  - KIDNEY ENLARGEMENT [None]
  - NEPHROPATHY TOXIC [None]
  - RASH ERYTHEMATOUS [None]
  - RASH MORBILLIFORM [None]
  - RENAL FAILURE [None]
